FAERS Safety Report 5724816-4 (Version None)
Quarter: 2008Q2

REPORT INFORMATION
  Report Type: 
  Country: None (occurrence: None)
  Receive Date: 20080501
  Receipt Date: 20080417
  Transmission Date: 20081010
  Serious: Yes (Other)
  Sender: FDA-Public Use
  Company Number: FR-AMGEN-US268582

PATIENT
  Sex: Female
  Weight: 57 kg

DRUGS (7)
  1. ENBREL [Suspect]
     Indication: RHEUMATOID ARTHRITIS
     Dosage: 50 MG TOTAL WEEKLY
     Route: 058
     Dates: start: 20060819
  2. CORTANCYL [Concomitant]
     Indication: RHEUMATOID ARTHRITIS
     Route: 048
  3. CALCIUM CARBONATE [Concomitant]
     Dosage: 2 TABLETS TOTAL DAILY
     Route: 048
  4. ACTONEL [Concomitant]
     Route: 048
  5. FOLIC ACID [Concomitant]
     Dosage: 2 TABLETS TOTAL WEEKLY
     Route: 048
  6. METHOTREXATE [Concomitant]
     Indication: RHEUMATOID ARTHRITIS
     Dosage: 7.5 MG TOTAL WEEKLY
     Route: 048
  7. DOLIPRANE [Concomitant]
     Dosage: 3 G TOTAL DAILY
     Route: 048

REACTIONS (2)
  - CATARACT [None]
  - IRIDOCYCLITIS [None]
